FAERS Safety Report 9076740 (Version 1)
Quarter: 2013Q1

REPORT INFORMATION
  Report Type: Report from Study
  Country: US (occurrence: US)
  Receive Date: 20130129
  Receipt Date: 20130129
  Transmission Date: 20140127
  Serious: No
  Sender: FDA-Public Use
  Company Number: US-ABBOTT-12P-163-0950109-00

PATIENT
  Age: 47 Year
  Sex: Female

DRUGS (15)
  1. HUMIRA 40 MG/0.8 ML PEN [Suspect]
     Indication: HIDRADENITIS
     Dates: start: 20120403
  2. LISINOPRIL [Suspect]
     Indication: PRODUCT USED FOR UNKNOWN INDICATION
  3. CLONIDINE [Suspect]
     Indication: PRODUCT USED FOR UNKNOWN INDICATION
  4. CYMBALTA [Concomitant]
     Indication: DEPRESSION
     Dosage: 10MG DAILY
  5. PROMETHAZINE [Concomitant]
     Indication: NAUSEA
     Dosage: 1 TABLET EVERY 8 HOURS AS NEEDED
  6. PROMETHAZINE [Concomitant]
     Indication: VOMITING
  7. AMBIEN [Concomitant]
     Indication: INSOMNIA
     Dosage: 10MG AT BEDTIME
  8. HYDROXYZINE HCL [Concomitant]
     Indication: PRURITUS
     Dosage: 25MG UP TO 4 TIMES A DAY
  9. LOMOTIL [Concomitant]
     Indication: DIARRHOEA
     Dosage: 2-4 TIMES DAILY
  10. ENJUVIA [Concomitant]
     Indication: HORMONE REPLACEMENT THERAPY
     Dosage: 1.25MG DAILY
  11. FUROSEMIDE [Concomitant]
     Indication: DIURETIC THERAPY
     Dosage: 5MG DAILY
  12. HIBICLENS [Concomitant]
     Indication: INFECTION PROPHYLAXIS
     Dosage: 1-2 TIMES DAILY IN SHOWER
  13. OMEPRAZOLE [Concomitant]
     Indication: GASTROOESOPHAGEAL REFLUX DISEASE
     Dosage: 20MG DAILY
  14. MULTIVITAMIN [Concomitant]
     Indication: VITAMIN SUPPLEMENTATION
  15. IRON [Concomitant]
     Indication: MINERAL SUPPLEMENTATION
     Dosage: 65MG DAILY

REACTIONS (6)
  - Blood pressure increased [Not Recovered/Not Resolved]
  - Drug ineffective [Not Recovered/Not Resolved]
  - Cough [Not Recovered/Not Resolved]
  - Renal disorder [Not Recovered/Not Resolved]
  - Wheezing [Not Recovered/Not Resolved]
  - Pruritus [Not Recovered/Not Resolved]
